FAERS Safety Report 11169975 (Version 1)
Quarter: 2015Q2

REPORT INFORMATION
  Report Type: Report from Study
  Country: FR (occurrence: FR)
  Receive Date: 20150608
  Receipt Date: 20150608
  Transmission Date: 20150821
  Serious: Yes (Death)
  Sender: FDA-Public Use
  Company Number: FR-ROCHE-1163478

PATIENT
  Age: 58 Year
  Sex: Male

DRUGS (13)
  1. RITUXIMAB [Suspect]
     Active Substance: RITUXIMAB
     Dosage: DAY 1
     Route: 042
     Dates: start: 20060206
  2. RITUXIMAB [Suspect]
     Active Substance: RITUXIMAB
     Dosage: DAY 1
     Route: 042
     Dates: start: 20080114
  3. RITUXIMAB [Suspect]
     Active Substance: RITUXIMAB
     Dosage: DAY 15
     Route: 042
     Dates: start: 20060314
  4. RITUXIMAB [Suspect]
     Active Substance: RITUXIMAB
     Dosage: DAY 15
     Route: 042
     Dates: start: 20070313
  5. METHOTREXATE [Concomitant]
     Active Substance: METHOTREXATE
     Dosage: DOSE: 7.5 (UNIT NOT REPORTED)
     Route: 065
     Dates: end: 20060223
  6. METHOTREXATE [Concomitant]
     Active Substance: METHOTREXATE
     Dosage: DOSE: 20 (UNIT NOT REPORTED)
     Route: 065
  7. CORTANCYL [Concomitant]
     Active Substance: PREDNISONE
     Route: 065
  8. RITUXIMAB [Suspect]
     Active Substance: RITUXIMAB
     Dosage: DAY 1
     Route: 042
     Dates: start: 20070226
  9. IXPRIM [Concomitant]
     Active Substance: ACETAMINOPHEN\TRAMADOL HYDROCHLORIDE
     Route: 065
     Dates: end: 20060223
  10. RITUXIMAB [Suspect]
     Active Substance: RITUXIMAB
     Indication: RHEUMATOID ARTHRITIS
     Dosage: DAY 1
     Route: 042
     Dates: start: 20050609
  11. RITUXIMAB [Suspect]
     Active Substance: RITUXIMAB
     Dosage: DAY 15
     Route: 042
     Dates: start: 20050624
  12. RITUXIMAB [Suspect]
     Active Substance: RITUXIMAB
     Dosage: DAY 15
     Route: 042
     Dates: start: 20080128
  13. ABATACEPT [Suspect]
     Active Substance: ABATACEPT
     Indication: PRODUCT USED FOR UNKNOWN INDICATION
     Route: 065
     Dates: start: 20080801

REACTIONS (5)
  - Cardiac failure [Fatal]
  - Cholestasis [Unknown]
  - Bronchopneumonia [Fatal]
  - Hepatocellular injury [Unknown]
  - Angina pectoris [Recovered/Resolved]

NARRATIVE: CASE EVENT DATE: 200602
